FAERS Safety Report 17168188 (Version 1)
Quarter: 2019Q4

REPORT INFORMATION
  Report Type: Spontaneous
  Country: US (occurrence: US)
  Receive Date: 20191218
  Receipt Date: 20191218
  Transmission Date: 20200122
  Serious: No
  Sender: FDA-Public Use
  Company Number: US-ASTRAZENECA-2019SF66851

PATIENT
  Sex: Female

DRUGS (2)
  1. LIPITOR [Concomitant]
     Active Substance: ATORVASTATIN CALCIUM
  2. BRILINTA [Suspect]
     Active Substance: TICAGRELOR
     Indication: MYOCARDIAL INFARCTION
     Route: 048
     Dates: start: 201905

REACTIONS (6)
  - Gastrointestinal pain [Unknown]
  - Weight decreased [Unknown]
  - Flatulence [Unknown]
  - Haemorrhoids [Unknown]
  - Contusion [Unknown]
  - Diarrhoea [Unknown]
